FAERS Safety Report 20470234 (Version 1)
Quarter: 2022Q1

REPORT INFORMATION
  Report Type: Report from Study
  Country: US (occurrence: US)
  Receive Date: 20220214
  Receipt Date: 20220214
  Transmission Date: 20220423
  Serious: Yes (Other)
  Sender: FDA-Public Use
  Company Number: US-BRISTOL-MYERS SQUIBB COMPANY-BMS-2022-015726

PATIENT
  Age: 58 Year
  Sex: Female

DRUGS (1)
  1. DASATINIB [Suspect]
     Active Substance: DASATINIB
     Indication: Product used for unknown indication
     Dosage: UNK
     Route: 065
     Dates: end: 20220127

REACTIONS (4)
  - Pyrexia [Recovered/Resolved]
  - White blood cell count decreased [Unknown]
  - Neutrophil count abnormal [Unknown]
  - Chills [Unknown]

NARRATIVE: CASE EVENT DATE: 20220110
